FAERS Safety Report 25305344 (Version 1)
Quarter: 2025Q2

REPORT INFORMATION
  Report Type: Spontaneous
  Country: US (occurrence: None)
  Receive Date: 20250513
  Receipt Date: 20250513
  Transmission Date: 20250716
  Serious: Yes (Hospitalization)
  Sender: FDA-CTU
  Company Number: None

PATIENT
  Age: 64 Year
  Sex: Male
  Weight: 121 kg

DRUGS (1)
  1. LEVOFLOXACIN [Suspect]
     Active Substance: LEVOFLOXACIN
     Indication: Prostatitis
     Dosage: FREQUENCY : DAILY;?
     Route: 048
     Dates: end: 20241109

REACTIONS (5)
  - Tendonitis [None]
  - Acute kidney injury [None]
  - Pain in extremity [None]
  - Peripheral swelling [None]
  - Rhabdomyolysis [None]

NARRATIVE: CASE EVENT DATE: 20241109
